FAERS Safety Report 10028293 (Version 1)
Quarter: 2014Q1

REPORT INFORMATION
  Report Type: Spontaneous
  Country: US (occurrence: US)
  Receive Date: 20140321
  Receipt Date: 20140321
  Transmission Date: 20141002
  Serious: Yes (Death)
  Sender: FDA-Public Use
  Company Number: US-PFIZER INC-2014081508

PATIENT
  Age: 61 Year
  Sex: Female

DRUGS (1)
  1. RAPAMUNE [Suspect]
     Indication: GRAFT VERSUS HOST DISEASE
     Dosage: 0.5 MG, ALTERNATE DAY
     Dates: start: 20130619

REACTIONS (2)
  - Leukaemia recurrent [Fatal]
  - Off label use [Unknown]
